FAERS Safety Report 10024786 (Version 1)
Quarter: 2014Q1

REPORT INFORMATION
  Report Type: Spontaneous
  Country: US (occurrence: US)
  Receive Date: 20140320
  Receipt Date: 20140320
  Transmission Date: 20141002
  Serious: Yes (Other)
  Sender: FDA-Public Use
  Company Number: US-BAXTER-2014BAX013325

PATIENT
  Age: 21 Year
  Sex: Female

DRUGS (2)
  1. GAMMAGARD LIQUID [Suspect]
     Indication: ACUTE GRAFT VERSUS HOST DISEASE
     Route: 042
  2. NAFCILLIN [Suspect]
     Indication: DEVICE RELATED INFECTION
     Route: 065

REACTIONS (2)
  - Fungal test positive [Not Recovered/Not Resolved]
  - False positive investigation result [Not Recovered/Not Resolved]
